FAERS Safety Report 9470082 (Version 2)
Quarter: 2013Q3

REPORT INFORMATION
  Report Type: Spontaneous
  Country: US (occurrence: None)
  Receive Date: 20130820
  Receipt Date: 20130820
  Transmission Date: 20140515
  Serious: Yes (Hospitalization)
  Sender: FDA-Public Use
  Company Number: None

PATIENT
  Age: 7 Year
  Sex: Female
  Weight: 23.9 kg

DRUGS (1)
  1. SINGULAIR [Suspect]
     Indication: ASTHMA
     Dosage: 1 TABLET QHS/BEDTIME ORAL
     Route: 048
     Dates: start: 20130714, end: 20130811

REACTIONS (5)
  - Fall [None]
  - Sleep terror [None]
  - Somnambulism [None]
  - Crying [None]
  - Injury [None]
